FAERS Safety Report 20719129 (Version 1)
Quarter: 2022Q2

REPORT INFORMATION
  Report Type: Spontaneous
  Country: US (occurrence: None)
  Receive Date: 20220415
  Receipt Date: 20220415
  Transmission Date: 20220721
  Serious: No
  Sender: FDA-Public Use
  Company Number: None

PATIENT
  Age: 52 Year
  Sex: Female

DRUGS (1)
  1. NUCALA [Suspect]
     Active Substance: MEPOLIZUMAB
     Indication: Asthma
     Route: 058
     Dates: start: 202008

REACTIONS (8)
  - Dry skin [None]
  - Eczema [None]
  - Skin discolouration [None]
  - Erythema [None]
  - Skin weeping [None]
  - Drug ineffective [None]
  - Asthma [None]
  - Dyspnoea [None]

NARRATIVE: CASE EVENT DATE: 20200804
